FAERS Safety Report 18972916 (Version 1)
Quarter: 2021Q1

REPORT INFORMATION
  Report Type: Spontaneous
  Country: JP (occurrence: JP)
  Receive Date: 20210305
  Receipt Date: 20210305
  Transmission Date: 20210420
  Serious: Yes (Other)
  Sender: FDA-Public Use
  Company Number: JP-AUROBINDO-AUR-APL-2019-049512

PATIENT
  Age: 59 Year
  Sex: Male
  Weight: 63 kg

DRUGS (5)
  1. RITUXIMAB. [Suspect]
     Active Substance: RITUXIMAB
     Indication: MANTLE CELL LYMPHOMA STAGE I
     Dosage: 250 MG/M2, SINGLE
     Route: 041
     Dates: start: 20100608, end: 20100608
  2. ZEVALIN [Suspect]
     Active Substance: IBRITUMOMAB TIUXETAN
     Dosage: UNK
     Route: 065
  3. ZEVALIN [Suspect]
     Active Substance: IBRITUMOMAB TIUXETAN
     Indication: MANTLE CELL LYMPHOMA STAGE I
     Dosage: 130 MBQ/KG, SINGLE
     Route: 042
     Dates: start: 20100608, end: 20100608
  4. RITUXIMAB. [Suspect]
     Active Substance: RITUXIMAB
     Dosage: 250 MG/M2, SINGLE
     Route: 041
     Dates: start: 20100615
  5. ZEVALIN [Suspect]
     Active Substance: IBRITUMOMAB TIUXETAN
     Indication: NON-HODGKIN^S LYMPHOMA
     Dosage: 698 MBQ/KG, SINGLE
     Route: 042
     Dates: start: 20100615, end: 20100615

REACTIONS (4)
  - Platelet count decreased [Recovered/Resolved]
  - Red blood cell count decreased [Recovered/Resolved]
  - Haematocrit decreased [Recovered/Resolved]
  - Haemoglobin decreased [Recovered/Resolved]

NARRATIVE: CASE EVENT DATE: 20100716
